FAERS Safety Report 21997854 (Version 3)
Quarter: 2023Q2

REPORT INFORMATION
  Report Type: Spontaneous
  Country: US (occurrence: US)
  Receive Date: 20230216
  Receipt Date: 20230429
  Transmission Date: 20230721
  Serious: No
  Sender: FDA-Public Use
  Company Number: US-UNITED THERAPEUTICS-UNT-2023-000942

PATIENT
  Sex: Female

DRUGS (15)
  1. ORENITRAM [Suspect]
     Active Substance: TREPROSTINIL
     Indication: Pulmonary arterial hypertension
     Dosage: 11 MG, TID
     Route: 048
  2. ORENITRAM [Suspect]
     Active Substance: TREPROSTINIL
     Dosage: 10 MG (2 TABLETS OF 5 MG), TID
     Route: 048
     Dates: start: 20230114, end: 202301
  3. ORENITRAM [Suspect]
     Active Substance: TREPROSTINIL
     Dosage: 10 MG IN THE MORNING (5 AM) AND 9 MG IN THE AFTERNOON (1 PM) AND EVENING (9 PM), TID
     Route: 048
     Dates: start: 202301
  4. ORENITRAM [Suspect]
     Active Substance: TREPROSTINIL
     Dosage: 9 MG, TID
     Route: 048
  5. ORENITRAM [Suspect]
     Active Substance: TREPROSTINIL
     Dosage: UNK, BID
     Route: 048
  6. ORENITRAM [Suspect]
     Active Substance: TREPROSTINIL
     Dosage: 8 MG, TID
     Route: 048
  7. ORENITRAM [Suspect]
     Active Substance: TREPROSTINIL
     Dosage: UNK
     Route: 048
     Dates: start: 202210
  8. ORENITRAM [Suspect]
     Active Substance: TREPROSTINIL
     Indication: Pulmonary arterial hypertension
     Dosage: UNK
     Route: 048
  9. ORENITRAM [Suspect]
     Active Substance: TREPROSTINIL
     Indication: Pulmonary arterial hypertension
     Dosage: UNK
     Route: 048
  10. VELETRI [Concomitant]
     Active Substance: EPOPROSTENOL
     Indication: Pulmonary arterial hypertension
     Dosage: UNK, CONTINUING
     Route: 042
  11. OPSUMIT [Concomitant]
     Active Substance: MACITENTAN
     Indication: Pulmonary arterial hypertension
     Dosage: 10 MG, QD
     Route: 048
     Dates: start: 20210804
  12. TADALAFIL [Concomitant]
     Active Substance: TADALAFIL
     Indication: Pulmonary arterial hypertension
     Dosage: 40 MG, QD
     Route: 048
     Dates: start: 20210720
  13. LASIX [Concomitant]
     Active Substance: FUROSEMIDE
     Indication: Product used for unknown indication
     Dosage: UNK
     Route: 065
  14. POTASSIUM [Concomitant]
     Active Substance: POTASSIUM
     Indication: Product used for unknown indication
     Dosage: UNK
     Route: 065
  15. OXYGEN [Concomitant]
     Active Substance: OXYGEN
     Indication: Pulmonary arterial hypertension
     Dosage: 3.5-4 LITER PER DAY
     Route: 045

REACTIONS (6)
  - Headache [Unknown]
  - Musculoskeletal discomfort [Unknown]
  - Head discomfort [Unknown]
  - Gastrointestinal disorder [Unknown]
  - Feeling abnormal [Unknown]
  - Malaise [Unknown]
